FAERS Safety Report 5485086-8 (Version None)
Quarter: 2007Q4

REPORT INFORMATION
  Report Type: 
  Country: None (occurrence: None)
  Receive Date: 20071009
  Receipt Date: 20071009
  Transmission Date: 20080405
  Serious: Yes (Life-Threatening, Hospitalization, Disabling)
  Sender: FDA-Public Use
  Company Number: None

PATIENT
  Age: 53 Year
  Sex: Male
  Weight: 61.2356 kg

DRUGS (7)
  1. RISPIDOL CONSTA [Suspect]
     Indication: BIPOLAR DISORDER
     Dosage: 25 MG 2-3 WKS 030, 12.5MG 2WKS 030
     Dates: start: 20070406, end: 20070506
  2. RISPIDOL CONSTA [Suspect]
     Indication: MANIA
     Dosage: 25 MG 2-3 WKS 030, 12.5MG 2WKS 030
     Dates: start: 20070406, end: 20070506
  3. RISPIDOL CONSTA [Suspect]
     Indication: TINNITUS
     Dosage: 25 MG 2-3 WKS 030, 12.5MG 2WKS 030
     Dates: start: 20070406, end: 20070506
  4. RISPIDOL CONSTA [Suspect]
     Indication: BIPOLAR DISORDER
     Dosage: 25 MG 2-3 WKS 030, 12.5MG 2WKS 030
     Dates: start: 20061106, end: 20070507
  5. RISPIDOL CONSTA [Suspect]
     Indication: MANIA
     Dosage: 25 MG 2-3 WKS 030, 12.5MG 2WKS 030
     Dates: start: 20061106, end: 20070507
  6. RISPIDOL CONSTA [Suspect]
     Indication: TINNITUS
     Dosage: 25 MG 2-3 WKS 030, 12.5MG 2WKS 030
     Dates: start: 20061106, end: 20070507
  7. LITHIUM [Concomitant]

REACTIONS (8)
  - ANOREXIA [None]
  - CONSTIPATION [None]
  - DISTURBANCE IN ATTENTION [None]
  - DYSPNOEA [None]
  - MOVEMENT DISORDER [None]
  - SOMNOLENCE [None]
  - SWELLING [None]
  - TREMOR [None]
